FAERS Safety Report 15773572 (Version 1)
Quarter: 2018Q4

REPORT INFORMATION
  Report Type: Report from Study
  Country: None (occurrence: RO)
  Receive Date: 20181228
  Receipt Date: 20181228
  Transmission Date: 20190205
  Serious: Yes (Hospitalization)
  Sender: FDA-Public Use
  Company Number: RO-ABBVIE-18S-135-2602974-00

PATIENT
  Age: 76 Year
  Sex: Male

DRUGS (10)
  1. VIEKIRAX [Suspect]
     Active Substance: OMBITASVIR\PARITAPREVIR\RITONAVIR
     Indication: HEPATITIS C
     Route: 048
     Dates: start: 20180629, end: 20180920
  2. EXVIERA [Suspect]
     Active Substance: DASABUVIR
     Indication: HEPATITIS C
     Route: 048
     Dates: start: 20180629, end: 20180920
  3. ISICOM [Concomitant]
     Active Substance: CARBIDOPA\LEVODOPA
     Indication: PARKINSON^S DISEASE
     Route: 048
  4. HEPAMERZ [Concomitant]
     Active Substance: ORNITHINE ASPARTATE
     Indication: LIVER DISORDER
     Dosage: 1 ENVELOPE/DAY ALTERNATIVE WITH SARGENOR
     Route: 048
  5. DIAPREL [Concomitant]
     Active Substance: GLICLAZIDE
     Indication: DIABETES MELLITUS
     Route: 048
  6. SILIVIT [Concomitant]
     Indication: LIVER DISORDER
     Route: 048
  7. SARGENOR [Concomitant]
     Active Substance: ARGININE ASPARTATE
     Indication: LIVER DISORDER
     Route: 048
  8. VIEKIRAX [Suspect]
     Active Substance: OMBITASVIR\PARITAPREVIR\RITONAVIR
     Indication: HEPATIC CIRRHOSIS
  9. EXVIERA [Suspect]
     Active Substance: DASABUVIR
     Indication: HEPATIC CIRRHOSIS
  10. OPRYMEA [Concomitant]
     Active Substance: PRAMIPEXOLE DIHYDROCHLORIDE
     Indication: PARKINSON^S DISEASE
     Route: 048

REACTIONS (1)
  - Postoperative wound complication [Recovered/Resolved]

NARRATIVE: CASE EVENT DATE: 201809
